FAERS Safety Report 15708652 (Version 1)
Quarter: 2018Q4

REPORT INFORMATION
  Report Type: Spontaneous
  Country: US (occurrence: US)
  Receive Date: 20181128
  Receipt Date: 20181128
  Transmission Date: 20190205
  Serious: Yes (Other)
  Sender: FDA-Public Use
  Company Number: None

PATIENT
  Age: 56 Year
  Sex: Female
  Weight: 130.18 kg

DRUGS (1)
  1. TADALAFIL 40MG DAILY [Suspect]
     Active Substance: TADALAFIL
     Indication: PULMONARY ARTERIAL HYPERTENSION
     Route: 048
     Dates: start: 20180901

REACTIONS (4)
  - Constipation [None]
  - Fatigue [None]
  - Product substitution issue [None]
  - Dyspnoea [None]
